FAERS Safety Report 6262441-X (Version None)
Quarter: 2009Q3

REPORT INFORMATION
  Report Type: 
  Country: None (occurrence: None)
  Receive Date: 20090709
  Receipt Date: 20090702
  Transmission Date: 20100115
  Serious: Yes (Death, Life-Threatening, Other)
  Sender: FDA-Public Use
  Company Number: CA-ASTRAZENECA-2008UW21600

PATIENT
  Age: 38 Year
  Sex: Male
  Weight: 133.8 kg

DRUGS (13)
  1. SEROQUEL [Suspect]
     Indication: SCHIZOPHRENIA
     Dosage: 200 MG SUPPER, 800 MG HS = 1000 MG/DAY
     Route: 048
     Dates: start: 20020801
  2. SEROQUEL [Suspect]
     Indication: THINKING ABNORMAL
     Dosage: 200 MG SUPPER, 800 MG HS = 1000 MG/DAY
     Route: 048
     Dates: start: 20020801
  3. SEROQUEL [Suspect]
     Dosage: 200 MG SUPPER, 800 MG HS = 1000 MG/DAY
     Route: 048
     Dates: start: 20020801
  4. SEROQUEL [Suspect]
     Dosage: 200 MG SUPPER, 800 MG HS = 1000 MG/DAY REDUCED BY 100-200 MG
     Route: 048
  5. SEROQUEL [Suspect]
     Dosage: 200 MG SUPPER, 800 MG HS = 1000 MG/DAY REDUCED BY 100-200 MG
     Route: 048
  6. SEROQUEL [Suspect]
     Dosage: 200 MG SUPPER, 800 MG HS = 1000 MG/DAY REDUCED BY 100-200 MG
     Route: 048
  7. CLOPIXOL [Concomitant]
     Indication: THINKING ABNORMAL
     Route: 048
     Dates: start: 20020801
  8. CLOPIXOL [Concomitant]
     Route: 048
     Dates: start: 20020801
  9. CARBAMAZEPINE [Concomitant]
     Indication: MOOD ALTERED
     Route: 048
     Dates: start: 20020801
  10. CARBAMAZEPINE [Concomitant]
     Indication: MOOD SWINGS
     Route: 048
     Dates: start: 20020801
  11. CARBAMAZEPINE [Concomitant]
     Indication: ABNORMAL BEHAVIOUR
     Route: 048
     Dates: start: 20020801
  12. CARBAMAZEPINE [Concomitant]
     Indication: AFFECT LABILITY
     Route: 048
     Dates: start: 20020801
  13. COGENTIN [Concomitant]
     Indication: EXTRAPYRAMIDAL DISORDER
     Dates: start: 20020801

REACTIONS (7)
  - FALL [None]
  - GAIT DISTURBANCE [None]
  - HYPERTHERMIA [None]
  - LIPIDS ABNORMAL [None]
  - MALAISE [None]
  - THYROID FUNCTION TEST ABNORMAL [None]
  - WEIGHT INCREASED [None]
